FAERS Safety Report 21135753 (Version 1)
Quarter: 2022Q3

REPORT INFORMATION
  Report Type: Other
  Country: CA (occurrence: CA)
  Receive Date: 20220727
  Receipt Date: 20220727
  Transmission Date: 20221027
  Serious: Yes (Hospitalization)
  Sender: FDA-Public Use
  Company Number: CA-APOTEX-2022AP010144

PATIENT
  Age: 60 Year
  Sex: Female

DRUGS (2)
  1. TIZANIDINE [Interacting]
     Active Substance: TIZANIDINE
     Indication: Multiple sclerosis
     Dosage: 4 MILLIGRAM, TID
     Route: 048
  2. CIPROFLOXACIN [Interacting]
     Active Substance: CIPROFLOXACIN
     Indication: Urinary tract infection
     Dosage: UNK
     Route: 048

REACTIONS (8)
  - Fluid replacement [Unknown]
  - Drug level increased [Unknown]
  - Drug interaction [Unknown]
  - Sedation [Unknown]
  - Fatigue [Unknown]
  - Asthenia [Unknown]
  - Hypotension [Unknown]
  - Somnolence [Unknown]
